FAERS Safety Report 8165629-6 (Version None)
Quarter: 2012Q1

REPORT INFORMATION
  Report Type: 
  Country: None (occurrence: None)
  Receive Date: 20120103
  Receipt Date: 20111018
  Transmission Date: 20120608
  Serious: No
  Sender: FDA-Public Use
  Company Number: AE-2011-002463

PATIENT
  Age: 57 Year
  Sex: Male
  Weight: 79.8331 kg

DRUGS (3)
  1. INCIVEK [Suspect]
     Dosage: (750 MG), ORAL
     Route: 048
     Dates: start: 20111014
  2. RIBAVIRIN [Concomitant]
  3. PEGASYS [Concomitant]

REACTIONS (5)
  - PROCTALGIA [None]
  - DIARRHOEA [None]
  - ANAL PRURITUS [None]
  - CONSTIPATION [None]
  - HAEMORRHOIDS [None]
